FAERS Safety Report 9252978 (Version 2)
Quarter: 2013Q2

REPORT INFORMATION
  Report Type: Report from Study
  Country: JP (occurrence: JP)
  Receive Date: 20130424
  Receipt Date: 20130529
  Transmission Date: 20140414
  Serious: Yes (Death, Hospitalization, Other)
  Sender: FDA-Public Use
  Company Number: JP-CELGENEUS-087-50794-13044033

PATIENT
  Age: 70 Year
  Sex: Male
  Weight: 58 kg

DRUGS (42)
  1. VIDAZA [Suspect]
     Indication: MYELODYSPLASTIC SYNDROME
     Dosage: 75 MILLIGRAM/SQ. METER
     Route: 041
     Dates: start: 20120924, end: 20120928
  2. VIDAZA [Suspect]
     Dosage: 75 MILLIGRAM/SQ. METER
     Route: 041
     Dates: start: 20121127, end: 20121205
  3. VIDAZA [Suspect]
     Dosage: 75 MILLIGRAM/SQ. METER
     Route: 041
     Dates: start: 20130107, end: 20130111
  4. VIDAZA [Suspect]
     Dosage: 75 MILLIGRAM/SQ. METER
     Route: 041
     Dates: start: 20130204, end: 20130206
  5. EXJADE [Concomitant]
     Indication: PRODUCT USED FOR UNKNOWN INDICATION
     Route: 065
     Dates: end: 20121212
  6. PARIET [Concomitant]
     Indication: PRODUCT USED FOR UNKNOWN INDICATION
     Route: 065
     Dates: end: 20130212
  7. MYSLEE [Concomitant]
     Indication: PRODUCT USED FOR UNKNOWN INDICATION
     Route: 065
     Dates: end: 20130212
  8. DAIPHEN [Concomitant]
     Indication: PRODUCT USED FOR UNKNOWN INDICATION
     Route: 065
     Dates: end: 20130212
  9. URSO [Concomitant]
     Indication: PRODUCT USED FOR UNKNOWN INDICATION
     Route: 065
     Dates: end: 20130212
  10. FLUCONAZOLE [Concomitant]
     Indication: PRODUCT USED FOR UNKNOWN INDICATION
     Route: 065
     Dates: end: 20130212
  11. MAGLAX [Concomitant]
     Indication: PRODUCT USED FOR UNKNOWN INDICATION
     Route: 065
     Dates: start: 20120926, end: 20130212
  12. THYRADIN [Concomitant]
     Indication: PRODUCT USED FOR UNKNOWN INDICATION
     Route: 065
     Dates: start: 20121002, end: 20130212
  13. AVELOX [Concomitant]
     Indication: PRODUCT USED FOR UNKNOWN INDICATION
     Route: 065
     Dates: start: 20120927, end: 20121004
  14. AVELOX [Concomitant]
     Route: 065
     Dates: start: 20121023, end: 20121029
  15. TELEMINSOFT [Concomitant]
     Indication: PRODUCT USED FOR UNKNOWN INDICATION
     Route: 065
     Dates: start: 20120928, end: 20130212
  16. CELESTAMINE [Concomitant]
     Indication: PRODUCT USED FOR UNKNOWN INDICATION
     Route: 065
     Dates: start: 20121004, end: 20130207
  17. RISUMIC [Concomitant]
     Indication: PRODUCT USED FOR UNKNOWN INDICATION
     Route: 065
     Dates: start: 20121015, end: 20130212
  18. SUNRYTHM [Concomitant]
     Indication: PRODUCT USED FOR UNKNOWN INDICATION
     Route: 065
     Dates: start: 20121114, end: 20121115
  19. ASPENON [Concomitant]
     Indication: PRODUCT USED FOR UNKNOWN INDICATION
     Route: 065
     Dates: start: 20121115, end: 20130212
  20. MAINTATE [Concomitant]
     Indication: PRODUCT USED FOR UNKNOWN INDICATION
     Route: 065
     Dates: start: 20121115, end: 20130212
  21. VFEND [Concomitant]
     Indication: PRODUCT USED FOR UNKNOWN INDICATION
     Route: 065
     Dates: start: 20121212, end: 20130212
  22. PACETCOOL [Concomitant]
     Indication: PRODUCT USED FOR UNKNOWN INDICATION
     Route: 065
     Dates: start: 20121005, end: 20121009
  23. FINIBAX [Concomitant]
     Indication: PRODUCT USED FOR UNKNOWN INDICATION
     Route: 065
     Dates: start: 20121009, end: 20121021
  24. FINIBAX [Concomitant]
     Route: 065
     Dates: start: 20121212, end: 20121224
  25. FINIBAX [Concomitant]
     Route: 065
     Dates: start: 20130207, end: 20130214
  26. TARGOCID [Concomitant]
     Indication: PRODUCT USED FOR UNKNOWN INDICATION
     Route: 065
     Dates: start: 20121031, end: 20121114
  27. FUNGUARD [Concomitant]
     Indication: PRODUCT USED FOR UNKNOWN INDICATION
     Route: 065
     Dates: start: 20121031, end: 20121121
  28. VENILON [Concomitant]
     Indication: PRODUCT USED FOR UNKNOWN INDICATION
     Route: 065
     Dates: start: 20121102, end: 20121103
  29. VENILON [Concomitant]
     Route: 065
     Dates: start: 20121212, end: 20121213
  30. VENILON [Concomitant]
     Route: 065
     Dates: start: 20130108, end: 20130109
  31. VENILON [Concomitant]
     Route: 065
     Dates: start: 20130208, end: 20130209
  32. NOVORAPID [Concomitant]
     Indication: PRODUCT USED FOR UNKNOWN INDICATION
     Route: 065
     Dates: start: 20120910, end: 20130214
  33. SOL-MELCORT [Concomitant]
     Indication: PRODUCT USED FOR UNKNOWN INDICATION
     Route: 065
     Dates: start: 20121105, end: 20121107
  34. MEROPEN [Concomitant]
     Indication: PRODUCT USED FOR UNKNOWN INDICATION
     Route: 065
     Dates: start: 20121029, end: 20121112
  35. ZOSYN [Concomitant]
     Indication: PRODUCT USED FOR UNKNOWN INDICATION
     Route: 065
     Dates: start: 20121119, end: 20121203
  36. ZOSYN [Concomitant]
     Route: 065
     Dates: start: 20130107, end: 20130120
  37. ZOSYN [Concomitant]
     Route: 065
     Dates: start: 20130205, end: 20130207
  38. AMBISOME [Concomitant]
     Indication: PRODUCT USED FOR UNKNOWN INDICATION
     Route: 065
     Dates: start: 20121122, end: 20121129
  39. KYTRIL [Concomitant]
     Indication: PRODUCT USED FOR UNKNOWN INDICATION
     Route: 065
     Dates: start: 20120924, end: 20130206
  40. VANCOMYCIN [Concomitant]
     Indication: PRODUCT USED FOR UNKNOWN INDICATION
     Route: 065
     Dates: start: 20130111, end: 20130123
  41. SOLU-MEDROL [Concomitant]
     Indication: PRODUCT USED FOR UNKNOWN INDICATION
     Route: 065
     Dates: start: 20130208, end: 201302
  42. RECOMODULIN [Concomitant]
     Indication: PRODUCT USED FOR UNKNOWN INDICATION
     Route: 065
     Dates: start: 20130208, end: 20130212

REACTIONS (9)
  - Blood creatinine increased [Not Recovered/Not Resolved]
  - Disseminated intravascular coagulation [Not Recovered/Not Resolved]
  - Blast cell count increased [Not Recovered/Not Resolved]
  - Interstitial lung disease [Recovering/Resolving]
  - Pneumonia [Recovered/Resolved]
  - Sepsis [Recovered/Resolved]
  - Pneumonia [Recovered/Resolved]
  - White blood cell count increased [Not Recovered/Not Resolved]
  - Pneumonia [Fatal]
